FAERS Safety Report 5678481-5 (Version None)
Quarter: 2008Q1

REPORT INFORMATION
  Report Type: 
  Country: None (occurrence: None)
  Receive Date: 20080325
  Receipt Date: 20080317
  Transmission Date: 20080703
  Serious: Yes (Other)
  Sender: FDA-Public Use
  Company Number: DZ-BRISTOL-MYERS SQUIBB COMPANY-14118780

PATIENT
  Age: 47 Year
  Sex: Female

DRUGS (6)
  1. ELISOR [Suspect]
     Indication: DYSLIPIDAEMIA
     Dates: end: 20080101
  2. GLUCOPHAGE [Suspect]
     Dosage: 1 DOSAGE FORM = 1 TAB
     Dates: end: 20080101
  3. ACETAMINOPHEN [Suspect]
     Dates: end: 20080101
  4. HYDROCORTISONE [Suspect]
     Dates: end: 20080101
  5. LEVOTHYROXINE SODIUM [Suspect]
  6. FERRO SANOL [Suspect]
     Dosage: 1 DOSAGE FORM = 1 CAP
     Dates: end: 20080101

REACTIONS (6)
  - ALANINE AMINOTRANSFERASE INCREASED [None]
  - ASPARTATE AMINOTRANSFERASE INCREASED [None]
  - BLOOD ALKALINE PHOSPHATASE INCREASED [None]
  - BLOOD CREATINE PHOSPHOKINASE INCREASED [None]
  - BLOOD LACTATE DEHYDROGENASE INCREASED [None]
  - MYALGIA [None]
